FAERS Safety Report 9136081 (Version 1)
Quarter: 2013Q1

REPORT INFORMATION
  Report Type: Spontaneous
  Country: FR (occurrence: None)
  Receive Date: 20130220
  Receipt Date: 20130220
  Transmission Date: 20140127
  Serious: Yes (Death, Life-Threatening, Other)
  Sender: FDA-Public Use
  Company Number: 2013CP000011

PATIENT
  Age: 84 Year
  Sex: Male

DRUGS (11)
  1. PERFALGAN [Suspect]
     Route: 042
     Dates: start: 20121217, end: 20131227
  2. ANAFRANIL [Suspect]
     Indication: DEPRESSION
     Route: 042
     Dates: start: 20121226
  3. MORPHINE [Suspect]
     Indication: PAIN
     Route: 042
     Dates: start: 20121226
  4. KARDEGIC [Suspect]
     Route: 048
     Dates: start: 20121226, end: 20121227
  5. CALCIPARINE [Suspect]
     Route: 058
     Dates: start: 20121221, end: 20121226
  6. SOLUPRED [Suspect]
     Route: 048
     Dates: start: 20121220, end: 20121225
  7. FLUINDIONE [Concomitant]
  8. ALLOPURINOL [Concomitant]
  9. COLCHIMAX  /00728901/ [Concomitant]
  10. TIAPRIDE [Concomitant]
  11. ENALAPRIL [Concomitant]

REACTIONS (5)
  - Pancytopenia [None]
  - General physical health deterioration [None]
  - Haematoma [None]
  - Pain [None]
  - Altered state of consciousness [None]
